FAERS Safety Report 9422046 (Version 1)
Quarter: 2013Q3

REPORT INFORMATION
  Report Type: Spontaneous
  Country: US (occurrence: US)
  Receive Date: 20130726
  Receipt Date: 20130726
  Transmission Date: 20140515
  Serious: Yes (Other)
  Sender: FDA-Public Use
  Company Number: US-SANOFI-AVENTIS-2013SA074760

PATIENT
  Age: 77 Year
  Sex: Male

DRUGS (4)
  1. LANTUS SOLOSTAR [Suspect]
     Indication: TYPE 2 DIABETES MELLITUS
     Dosage: 48 UNITS / 28UNITS
     Route: 058
  2. SOLOSTAR [Suspect]
     Indication: TYPE 2 DIABETES MELLITUS
  3. AMIODARONE [Suspect]
     Route: 065
  4. METFORMIN [Suspect]
     Indication: BLOOD GLUCOSE
     Dosage: 125
     Route: 065

REACTIONS (5)
  - Thrombocytopenia [Unknown]
  - Dehydration [Unknown]
  - Cellulitis [Unknown]
  - Hyperglycaemia [Unknown]
  - Glycosylated haemoglobin increased [Unknown]
